FAERS Safety Report 20076931 (Version 3)
Quarter: 2022Q1

REPORT INFORMATION
  Report Type: Spontaneous
  Country: US (occurrence: US)
  Receive Date: 20211116
  Receipt Date: 20220214
  Transmission Date: 20220424
  Serious: Yes (Hospitalization, Other)
  Sender: FDA-Public Use
  Company Number: US-PFIZER INC-202101169342

PATIENT
  Age: 38 Year
  Sex: Female

DRUGS (3)
  1. XELJANZ XR [Suspect]
     Active Substance: TOFACITINIB CITRATE
     Dosage: 11 MG
     Dates: start: 20210723
  2. XELJANZ XR [Suspect]
     Active Substance: TOFACITINIB CITRATE
     Dosage: 11 MG
     Dates: start: 20210803
  3. XELJANZ XR [Suspect]
     Active Substance: TOFACITINIB CITRATE
     Dosage: 11 MG
     Dates: start: 20210907

REACTIONS (13)
  - Pneumonia [Recovering/Resolving]
  - Influenza [Recovering/Resolving]
  - Urinary tract infection [Recovering/Resolving]
  - Kidney infection [Recovering/Resolving]
  - Off label use [Unknown]
  - Product use issue [Unknown]
  - Headache [Not Recovered/Not Resolved]
  - Upper respiratory tract infection [Unknown]
  - Nausea [Unknown]
  - Musculoskeletal stiffness [Unknown]
  - Joint stiffness [Unknown]
  - Immune system disorder [Recovering/Resolving]
  - Cough [Recovering/Resolving]
